FAERS Safety Report 12278353 (Version 3)
Quarter: 2016Q2

REPORT INFORMATION
  Report Type: Spontaneous
  Country: US (occurrence: US)
  Receive Date: 20160418
  Receipt Date: 20160627
  Transmission Date: 20160815
  Serious: Yes (Other)
  Sender: FDA-Public Use
  Company Number: US-PFIZER INC-2016211552

PATIENT
  Age: 57 Year
  Sex: Male

DRUGS (1)
  1. ZOLOFT [Suspect]
     Active Substance: SERTRALINE HYDROCHLORIDE
     Dosage: UNK

REACTIONS (6)
  - Drug intolerance [Unknown]
  - Paraesthesia [Not Recovered/Not Resolved]
  - Drug hypersensitivity [Unknown]
  - Headache [Unknown]
  - Swollen tongue [Unknown]
  - Pharyngeal oedema [Unknown]
